FAERS Safety Report 20212205 (Version 4)
Quarter: 2022Q4

REPORT INFORMATION
  Report Type: Spontaneous
  Country: US (occurrence: US)
  Receive Date: 20211221
  Receipt Date: 20221214
  Transmission Date: 20230112
  Serious: No
  Sender: FDA-Public Use
  Company Number: US-PFIZER INC-2021727689

PATIENT
  Age: 71 Year
  Sex: Male
  Weight: 97.52 kg

DRUGS (3)
  1. IBRANCE [Suspect]
     Active Substance: PALBOCICLIB
     Indication: Breast cancer
     Dosage: 125 MG, CYCLIC (FOR 21 DAYS AND THEN IS OFF FOR 7 DAYS)
     Dates: start: 2020
  2. IBRANCE [Suspect]
     Active Substance: PALBOCICLIB
     Dosage: 125 MG
     Dates: start: 20210225
  3. ENTRESTO [Concomitant]
     Active Substance: SACUBITRIL\VALSARTAN
     Indication: Cardiac disorder
     Dosage: UNK (24MG-26MG TABLETS, TAKES HALF A TABLET IN THE MORNING AND HALF IN THE AFTERNOON)
     Dates: start: 202010

REACTIONS (3)
  - Hypoacusis [Unknown]
  - Oral mucosal blistering [Unknown]
  - Stomatitis [Unknown]
